FAERS Safety Report 5326506-9 (Version None)
Quarter: 2007Q2

REPORT INFORMATION
  Report Type: 
  Country: None (occurrence: None)
  Receive Date: 20070516
  Receipt Date: 20070511
  Transmission Date: 20071010
  Serious: Yes (Other)
  Sender: FDA-Public Use
  Company Number: US-JNJFOC-20070502937

PATIENT
  Age: 63 Year
  Sex: Female
  Weight: 99.79 kg

DRUGS (17)
  1. EXTRA STRENGTH TYLENOL [Suspect]
     Route: 048
  2. EXTRA STRENGTH TYLENOL [Suspect]
     Indication: ARTHRALGIA
     Route: 048
  3. ST. JOSEPH ASPIRIN [Concomitant]
     Indication: CARDIAC DISORDER
  4. PROTONIX [Concomitant]
  5. SPIRONOLACTONE [Concomitant]
  6. LIPITOR [Concomitant]
  7. CATAPRES [Concomitant]
  8. DILTIAZEM [Concomitant]
  9. LORAZEPAM [Concomitant]
  10. LOPRESSOR [Concomitant]
  11. PLAVIX [Concomitant]
  12. ASCORBIC ACID [Concomitant]
  13. MILK OF MAGNESIA TAB [Concomitant]
     Dosage: AS NECESSARY
  14. MAALOX FAST BLOCKER [Concomitant]
     Dosage: AS NECESSARY
  15. ROLAIDS [Concomitant]
     Dosage: AS NECESSARY
  16. NITROGLYCERIN [Concomitant]
     Dosage: AS NECESSARY
  17. VITAMIN CAP [Concomitant]
     Dosage: AS NECESSARY

REACTIONS (2)
  - CHEST PAIN [None]
  - TINNITUS [None]
